FAERS Safety Report 17291706 (Version 1)
Quarter: 2020Q1

REPORT INFORMATION
  Report Type: Spontaneous
  Country: US (occurrence: US)
  Receive Date: 20200118
  Receipt Date: 20200118
  Transmission Date: 20200409
  Serious: Yes (Disabling)
  Sender: FDA-Public Use
  Company Number: None

PATIENT
  Age: 80 Year
  Sex: Female
  Weight: 56.25 kg

DRUGS (7)
  1. MULTI-VITAMIN [Concomitant]
     Active Substance: .ALPHA.-TOCOPHEROL ACETATE, DL-\ASCORBIC ACID\CYANOCOBALAMIN\FLUORIDE ION\FOLIC ACID\NIACIN\PYRIDOXINE\RIBOFLAVIN\THIAMINE\VITAMIN A\VITAMIN D
  2. LIPITOR [Concomitant]
     Active Substance: ATORVASTATIN CALCIUM
  3. TRAZODONE [Concomitant]
     Active Substance: TRAZODONE HYDROCHLORIDE
  4. POT CLONAZEPAM [Concomitant]
  5. LEXAPRO [Concomitant]
     Active Substance: ESCITALOPRAM OXALATE
  6. CLONAZEPAM GENERIC FOR KLONOPIN [Suspect]
     Active Substance: CLONAZEPAM
     Indication: PRODUCT USED FOR UNKNOWN INDICATION
     Dosage: ?          QUANTITY:1 TABLET(S);?
     Route: 048
     Dates: start: 20200101, end: 20200118
  7. GABAPENTIN. [Concomitant]
     Active Substance: GABAPENTIN

REACTIONS (16)
  - Amnesia [None]
  - Decreased appetite [None]
  - Headache [None]
  - Panic attack [None]
  - Chills [None]
  - Fatigue [None]
  - Gait disturbance [None]
  - Paranoia [None]
  - Hot flush [None]
  - Hypopnoea [None]
  - Feeding disorder [None]
  - Malnutrition [None]
  - Feeling of body temperature change [None]
  - Delusion [None]
  - Abdominal discomfort [None]
  - Heart rate decreased [None]

NARRATIVE: CASE EVENT DATE: 20200101
